FAERS Safety Report 7779157-0 (Version None)
Quarter: 2011Q3

REPORT INFORMATION
  Report Type: 
  Country: None (occurrence: None)
  Receive Date: 20110926
  Receipt Date: 20110913
  Transmission Date: 20111222
  Serious: Yes (Hospitalization)
  Sender: FDA-Public Use
  Company Number: CA-ELI_LILLY_AND_COMPANY-CA201109003732

PATIENT
  Age: 35 Year
  Sex: Male

DRUGS (7)
  1. CELEXA [Concomitant]
     Dosage: 20 MG, QD
  2. CYMBALTA [Suspect]
     Dosage: 60 MG, UNK
  3. CYMBALTA [Suspect]
     Dosage: 90 MG, UNK
  4. OXYCONTIN [Concomitant]
     Dosage: 20 MG, BID
  5. CYMBALTA [Suspect]
     Indication: DEPRESSION
     Dosage: 30 MG, UNK
     Dates: start: 20110701
  6. KLONOPIN [Concomitant]
     Dosage: 0.5 MG, QD
  7. VALPROATE SODIUM [Concomitant]
     Dosage: 1500 MG, QD

REACTIONS (2)
  - SUICIDAL IDEATION [None]
  - INTENTIONAL SELF-INJURY [None]
